FAERS Safety Report 7350426-1 (Version None)
Quarter: 2011Q1

REPORT INFORMATION
  Report Type: 
  Country: None (occurrence: None)
  Receive Date: 20110314
  Receipt Date: 20110310
  Transmission Date: 20110831
  Serious: Yes (Other)
  Sender: FDA-Public Use
  Company Number: US-BRACCO-005976

PATIENT
  Sex: Female
  Weight: 100 kg

DRUGS (3)
  1. ISOVUE-128 [Suspect]
     Indication: ANEURYSM
     Route: 013
     Dates: start: 20110309, end: 20110309
  2. ISOVUE-128 [Suspect]
     Indication: ANGIOGRAM
     Route: 013
     Dates: start: 20110309, end: 20110309
  3. ISOVUE-128 [Suspect]
     Indication: NECK MASS
     Route: 013
     Dates: start: 20110309, end: 20110309

REACTIONS (2)
  - DYSPNOEA [None]
  - BRONCHOSPASM [None]
